FAERS Safety Report 14779115 (Version 5)
Quarter: 2018Q2

REPORT INFORMATION
  Report Type: Report from Study
  Country: GB (occurrence: GB)
  Receive Date: 20180419
  Receipt Date: 20180614
  Transmission Date: 20180711
  Serious: Yes (Other)
  Sender: FDA-Public Use
  Company Number: GB-PFIZER INC-2018155735

PATIENT
  Age: 62 Year
  Sex: Male

DRUGS (3)
  1. ARTHROTEC [Suspect]
     Active Substance: DICLOFENAC SODIUM\MISOPROSTOL
     Dosage: UNK, AS NEEDED
     Route: 048
  2. METHOTREXATE SODIUM. [Suspect]
     Active Substance: METHOTREXATE SODIUM
     Dosage: UNK (FROM 2005 OR 2006)
     Route: 065
  3. HUMIRA [Suspect]
     Active Substance: ADALIMUMAB
     Indication: RHEUMATOID ARTHRITIS
     Dosage: UNK
     Route: 058
     Dates: start: 20170301

REACTIONS (13)
  - Sensitivity to weather change [Unknown]
  - Pneumonia [Unknown]
  - Fall [Unknown]
  - Seasonal allergy [Not Recovered/Not Resolved]
  - Lower respiratory tract infection [Unknown]
  - Tooth disorder [Unknown]
  - Infection [Unknown]
  - Rhinitis [Unknown]
  - Mobility decreased [Unknown]
  - Condition aggravated [Unknown]
  - Nasopharyngitis [Unknown]
  - Disease recurrence [Not Recovered/Not Resolved]
  - Stress [Unknown]

NARRATIVE: CASE EVENT DATE: 201705
